FAERS Safety Report 4678260-1 (Version None)
Quarter: 2005Q2

REPORT INFORMATION
  Report Type: 
  Country: None (occurrence: None)
  Receive Date: 20050601
  Receipt Date: 20041214
  Transmission Date: 20051028
  Serious: Yes (Life-Threatening)
  Sender: FDA-Public Use
  Company Number: 200419596US

PATIENT
  Sex: Male
  Weight: 93.4 kg

DRUGS (8)
  1. ENOXAPARIN SODIUM [Suspect]
     Route: 040
     Dates: start: 20041210, end: 20041210
  2. ASPIRIN [Concomitant]
     Indication: CORONARY ARTERY DISEASE
     Route: 048
  3. ASPIRIN [Concomitant]
     Indication: STENT PLACEMENT
     Route: 048
  4. PLAVIX [Concomitant]
     Indication: CORONARY ARTERY DISEASE
     Route: 048
  5. PLAVIX [Concomitant]
     Indication: STENT PLACEMENT
     Route: 048
  6. COZAAR [Concomitant]
     Indication: HYPERTENSION
     Route: 048
  7. TOPROL-XL [Concomitant]
     Indication: HYPERTENSION
     Route: 048
  8. PRAVACHOL [Concomitant]
     Indication: HYPERLIPIDAEMIA
     Route: 048

REACTIONS (6)
  - BRAIN STEM INFARCTION [None]
  - CEREBROVASCULAR ACCIDENT [None]
  - DYSARTHRIA [None]
  - HEMIPARESIS [None]
  - HYPOTENSION [None]
  - SYNCOPE [None]
